APPROVED DRUG PRODUCT: POLOCAINE W/ LEVONORDEFRIN
Active Ingredient: LEVONORDEFRIN; MEPIVACAINE HYDROCHLORIDE
Strength: 0.05MG/ML;2%
Dosage Form/Route: INJECTABLE;INJECTION
Application: A089517 | Product #001
Applicant: DENTSPLY PHARMACEUTICAL
Approved: Apr 14, 1988 | RLD: No | RS: No | Type: DISCN